FAERS Safety Report 6890216-7 (Version None)
Quarter: 2010Q3

REPORT INFORMATION
  Report Type: 
  Country: None (occurrence: None)
  Receive Date: 20100730
  Receipt Date: 20080908
  Transmission Date: 20110219
  Serious: No
  Sender: FDA-Public Use
  Company Number: US-PFIZER INC-2008069336

PATIENT
  Sex: Male
  Weight: 54.545 kg

DRUGS (6)
  1. LIPITOR [Suspect]
     Indication: LIPIDS INCREASED
     Route: 048
     Dates: start: 20080806, end: 20080801
  2. LIPITOR [Suspect]
     Indication: CORONARY ARTERY DISEASE
  3. CHANTIX [Suspect]
     Indication: SMOKING CESSATION THERAPY
     Route: 048
     Dates: start: 20080806
  4. CHANTIX [Suspect]
     Indication: TOBACCO ABUSE
  5. MOTRIN MIGRAINE PAIN [Suspect]
     Indication: PAIN IN EXTREMITY
     Dates: start: 20080801
  6. ACETYLSALICYLIC ACID SRT [Concomitant]

REACTIONS (4)
  - DRUG INEFFECTIVE [None]
  - MUSCLE SPASMS [None]
  - MYALGIA [None]
  - PAIN IN EXTREMITY [None]
